FAERS Safety Report 8076907-3 (Version None)
Quarter: 2012Q1

REPORT INFORMATION
  Report Type: 
  Country: None (occurrence: None)
  Receive Date: 20120127
  Receipt Date: 20120125
  Transmission Date: 20120608
  Serious: Yes (Hospitalization)
  Sender: FDA-Public Use
  Company Number: US-GILEAD-2011-0048052

PATIENT
  Sex: Female

DRUGS (1)
  1. LETAIRIS [Suspect]
     Indication: PULMONARY ARTERIAL HYPERTENSION
     Dosage: 10 MG,
     Route: 048
     Dates: start: 20111202

REACTIONS (8)
  - HEART RATE INCREASED [None]
  - BLOOD PRESSURE DECREASED [None]
  - FLUSHING [None]
  - OEDEMA PERIPHERAL [None]
  - DEAFNESS UNILATERAL [None]
  - UNEVALUABLE EVENT [None]
  - DYSPNOEA [None]
  - FLUID RETENTION [None]
